FAERS Safety Report 7384637-6 (Version None)
Quarter: 2011Q1

REPORT INFORMATION
  Report Type: 
  Country: None (occurrence: None)
  Receive Date: 20110322
  Receipt Date: 20110309
  Transmission Date: 20110831
  Serious: Yes (Hospitalization)
  Sender: FDA-Public Use
  Company Number: 2011MA002434

PATIENT
  Age: 82 Year
  Sex: Male

DRUGS (4)
  1. THIAMINE [Concomitant]
  2. VITAMIN B  COMPOUND STRONG [Concomitant]
  3. GOSERELIN [Concomitant]
  4. BICALUTAMIDE [Suspect]
     Indication: TUMOUR FLARE
     Dosage: 50 MG, QD, PO
     Route: 048
     Dates: start: 20110217, end: 20110225

REACTIONS (2)
  - JAUNDICE CHOLESTATIC [None]
  - LIVER FUNCTION TEST ABNORMAL [None]
